FAERS Safety Report 24992347 (Version 1)
Quarter: 2025Q1

REPORT INFORMATION
  Report Type: Other
  Country: CA (occurrence: CA)
  Receive Date: 20250220
  Receipt Date: 20250220
  Transmission Date: 20250408
  Serious: Yes (Other)
  Sender: APOTEX
  Company Number: CA-APOTEX-2025AP002250

PATIENT
  Age: 51 Year
  Sex: Female

DRUGS (1)
  1. OLANZAPINE [Suspect]
     Active Substance: OLANZAPINE
     Indication: Generalised anxiety disorder
     Dosage: 2.5 MILLIGRAM, QD
     Route: 065

REACTIONS (4)
  - Off label use [Unknown]
  - Tardive dyskinesia [Unknown]
  - Fatigue [Unknown]
  - Somnolence [Unknown]
